FAERS Safety Report 19663535 (Version 3)
Quarter: 2021Q3

REPORT INFORMATION
  Report Type: Report from Study
  Country: CN (occurrence: CN)
  Receive Date: 20210805
  Receipt Date: 20210910
  Transmission Date: 20211014
  Serious: Yes (Hospitalization)
  Sender: FDA-Public Use
  Company Number: CN-ASTRAZENECA-2021A490010

PATIENT
  Age: 19544 Day
  Sex: Male

DRUGS (15)
  1. CISPLATIN. [Suspect]
     Active Substance: CISPLATIN
     Indication: BILE DUCT CANCER
     Dosage: 25 MG/M2 (EACH ADMINISTERED ON DAYS 1 AND 8 Q3W) UP TO 8 CYCLES
     Route: 042
     Dates: start: 20210508, end: 20210508
  2. GEMCITABINE. [Suspect]
     Active Substance: GEMCITABINE
     Indication: BILE DUCT CANCER
     Dosage: 1000 MG/M2 (EACH ADMINISTERED ON DAYS 1 AND 8 Q3W) UP TO 8 CYCLES
     Route: 042
     Dates: start: 20210416, end: 20210416
  3. CISPLATIN. [Suspect]
     Active Substance: CISPLATIN
     Indication: BILE DUCT CANCER
     Dosage: 25 MG/M2 (EACH ADMINISTERED ON DAYS 1 AND 8 Q3W) UP TO 8 CYCLES
     Route: 042
     Dates: start: 20210416, end: 20210416
  4. GEMCITABINE. [Suspect]
     Active Substance: GEMCITABINE
     Indication: BILE DUCT CANCER
     Dosage: 1000 MG/M2 (EACH ADMINISTERED ON DAYS 1 AND 8 Q3W) UP TO 8 CYCLES
     Route: 042
     Dates: start: 20210425, end: 20210425
  5. DURVALUMAB. [Suspect]
     Active Substance: DURVALUMAB
     Indication: BILE DUCT CANCER
     Route: 042
     Dates: start: 20210508, end: 20210508
  6. GEMCITABINE. [Suspect]
     Active Substance: GEMCITABINE
     Indication: BILE DUCT CANCER
     Dosage: 1000 MG/M2 (EACH ADMINISTERED ON DAYS 1 AND 8 Q3W) UP TO 8 CYCLES
     Route: 042
     Dates: start: 20210508, end: 20210508
  7. DIPHENHYDRAMINE. [Concomitant]
     Active Substance: DIPHENHYDRAMINE
     Indication: PROPHYLAXIS
     Dosage: 40.0MG ONCE/SINGLE ADMINISTRATION
     Route: 030
     Dates: start: 20210514, end: 20210514
  8. DIPHENHYDRAMINE. [Concomitant]
     Active Substance: DIPHENHYDRAMINE
     Indication: ANTIALLERGIC THERAPY
     Dosage: 40.0MG ONCE/SINGLE ADMINISTRATION
     Route: 030
     Dates: start: 20210508, end: 20210508
  9. DIPHENHYDRAMINE. [Concomitant]
     Active Substance: DIPHENHYDRAMINE
     Indication: PROPHYLAXIS
     Dosage: 40.0MG ONCE/SINGLE ADMINISTRATION
     Route: 030
     Dates: start: 20210508, end: 20210508
  10. DURVALUMAB. [Suspect]
     Active Substance: DURVALUMAB
     Indication: BILE DUCT CANCER
     Route: 042
     Dates: start: 20210416, end: 20210416
  11. CISPLATIN. [Suspect]
     Active Substance: CISPLATIN
     Indication: BILE DUCT CANCER
     Dosage: 25 MG/M2 (EACH ADMINISTERED ON DAYS 1 AND 8 Q3W) UP TO 8 CYCLES
     Route: 042
     Dates: start: 20210425, end: 20210425
  12. CISPLATIN. [Suspect]
     Active Substance: CISPLATIN
     Indication: BILE DUCT CANCER
     Dosage: 25 MG/M2 (EACH ADMINISTERED ON DAYS 1 AND 8 Q3W) UP TO 8 CYCLES
     Route: 042
     Dates: start: 20210514, end: 20210514
  13. GEMCITABINE. [Suspect]
     Active Substance: GEMCITABINE
     Indication: BILE DUCT CANCER
     Dosage: 1000 MG/M2 (EACH ADMINISTERED ON DAYS 1 AND 8 Q3W) UP TO 8 CYCLES
     Route: 042
     Dates: start: 20210514, end: 20210514
  14. PALONOSETRON. [Concomitant]
     Active Substance: PALONOSETRON HYDROCHLORIDE
     Indication: PROPHYLAXIS OF NAUSEA AND VOMITING
     Dosage: 0.25MG ONCE/SINGLE ADMINISTRATION
     Route: 042
     Dates: start: 20210508, end: 20210508
  15. DIPHENHYDRAMINE. [Concomitant]
     Active Substance: DIPHENHYDRAMINE
     Indication: ANTIALLERGIC THERAPY
     Dosage: 40.0MG ONCE/SINGLE ADMINISTRATION
     Route: 030
     Dates: start: 20210514, end: 20210514

REACTIONS (3)
  - Acute kidney injury [Not Recovered/Not Resolved]
  - Hepatic failure [Not Recovered/Not Resolved]
  - Myocardial necrosis marker increased [Recovered/Resolved]

NARRATIVE: CASE EVENT DATE: 20210529
